FAERS Safety Report 21895356 (Version 1)
Quarter: 2023Q1

REPORT INFORMATION
  Report Type: Spontaneous
  Country: ID (occurrence: None)
  Receive Date: 20230123
  Receipt Date: 20230123
  Transmission Date: 20230418
  Serious: Yes (Hospitalization)
  Sender: FDA-Public Use
  Company Number: ID-ROCHE-3261300

PATIENT
  Age: 55 Year
  Sex: Male

DRUGS (4)
  1. TECENTRIQ [Suspect]
     Active Substance: ATEZOLIZUMAB
     Indication: Hepatocellular carcinoma
     Route: 065
  2. AVASTIN [Suspect]
     Active Substance: BEVACIZUMAB
     Indication: Hepatocellular carcinoma
     Route: 065
  3. TRAMADOL [Concomitant]
     Active Substance: TRAMADOL
  4. FENTANYL [Concomitant]
     Active Substance: FENTANYL

REACTIONS (7)
  - Haemorrhage [Unknown]
  - Fatigue [Unknown]
  - Vomiting [Unknown]
  - Pain [Unknown]
  - Palpitations [Unknown]
  - Gastrointestinal oedema [Unknown]
  - Hepatitis B [Unknown]

NARRATIVE: CASE EVENT DATE: 20221231
